FAERS Safety Report 10110096 (Version 2)
Quarter: 2014Q2

REPORT INFORMATION
  Report Type: Spontaneous
  Country: US (occurrence: None)
  Receive Date: 20140423
  Receipt Date: 20140522
  Transmission Date: 20141212
  Serious: Yes (Other)
  Sender: FDA-Public Use
  Company Number: 2014P1003046

PATIENT
  Age: 91 Year
  Sex: Female
  Weight: 62.6 kg

DRUGS (1)
  1. ALENDRONATE [Suspect]
     Indication: OSTEOPOROSIS
     Route: 048
     Dates: start: 1994, end: 20140324

REACTIONS (9)
  - Lung neoplasm malignant [None]
  - Back pain [None]
  - Musculoskeletal pain [None]
  - Arthritis [None]
  - Disorientation [None]
  - Muscular weakness [None]
  - Insomnia [None]
  - Pain [None]
  - Fall [None]
